FAERS Safety Report 8772485 (Version 6)
Quarter: 2015Q3

REPORT INFORMATION
  Report Type: Spontaneous
  Country: US (occurrence: US)
  Receive Date: 20120905
  Receipt Date: 20150717
  Transmission Date: 20151125
  Serious: No
  Sender: FDA-Public Use
  Company Number: US-009507513-1209USA000753

PATIENT
  Sex: Male

DRUGS (4)
  1. PROPECIA [Suspect]
     Active Substance: FINASTERIDE
     Indication: ANDROGENETIC ALOPECIA
     Dosage: 1 MG, QD
     Route: 048
     Dates: start: 20020506, end: 20110511
  2. FINASTERIDE. [Suspect]
     Active Substance: FINASTERIDE
     Indication: PRODUCT USED FOR UNKNOWN INDICATION
     Dosage: 1 MG, UNKNOWN
     Route: 048
     Dates: start: 20130917
  3. PROPECIA [Suspect]
     Active Substance: FINASTERIDE
     Dosage: 10 MG QD
     Route: 048
     Dates: start: 20030422
  4. PROSCAR [Suspect]
     Active Substance: FINASTERIDE
     Dosage: 5 MG, QD
     Route: 048
     Dates: start: 20130926

REACTIONS (26)
  - Cognitive disorder [Not Recovered/Not Resolved]
  - Overdose [Unknown]
  - Endocrine disorder [Unknown]
  - Testicular pain [Unknown]
  - Hypercholesterolaemia [Unknown]
  - Arthralgia [Unknown]
  - Rash [Unknown]
  - Sinusitis [Unknown]
  - Headache [Unknown]
  - Sinusitis [Unknown]
  - Pain [Not Recovered/Not Resolved]
  - Erectile dysfunction [Unknown]
  - Back pain [Unknown]
  - Neck pain [Unknown]
  - Adverse drug reaction [Unknown]
  - Benign prostatic hyperplasia [Unknown]
  - Gallbladder disorder [Unknown]
  - Depression [Unknown]
  - Incision site pain [Unknown]
  - Wound [Unknown]
  - Libido decreased [Unknown]
  - Ejaculation disorder [Unknown]
  - Peyronie^s disease [Unknown]
  - Androgen deficiency [Unknown]
  - Sexual dysfunction [Not Recovered/Not Resolved]
  - Semen volume decreased [Unknown]

NARRATIVE: CASE EVENT DATE: 20020708
